FAERS Safety Report 4608744-3 (Version None)
Quarter: 2005Q1

REPORT INFORMATION
  Report Type: 
  Country: None (occurrence: None)
  Receive Date: 20050309
  Receipt Date: 20050302
  Transmission Date: 20050727
  Serious: Yes (Death, Hospitalization)
  Sender: FDA-Public Use
  Company Number: EWC050142438

PATIENT
  Age: 72 Year
  Sex: Female

DRUGS (4)
  1. FORTEO [Suspect]
     Indication: OSTEOPOROSIS
     Dosage: 20 UG/ 1 DAY
     Dates: start: 20050103, end: 20050125
  2. ANEUROL [Concomitant]
  3. ACETAMINOPHEN [Concomitant]
  4. SOMAZINE (CITICOLINE) [Concomitant]

REACTIONS (15)
  - ABDOMINAL PAIN UPPER [None]
  - ACUTE PRERENAL FAILURE [None]
  - BACTERIA URINE IDENTIFIED [None]
  - BLOOD THYROID STIMULATING HORMONE INCREASED [None]
  - CARDIOGENIC SHOCK [None]
  - DYSPNOEA [None]
  - ESCHERICHIA INFECTION [None]
  - GENERAL PHYSICAL CONDITION ABNORMAL [None]
  - INFLUENZA LIKE ILLNESS [None]
  - LOW CARDIAC OUTPUT SYNDROME [None]
  - METABOLIC ACIDOSIS [None]
  - MULTI-ORGAN FAILURE [None]
  - RHABDOMYOLYSIS [None]
  - TOXICOLOGIC TEST ABNORMAL [None]
  - VIRAL MYOCARDITIS [None]
